FAERS Safety Report 9301426 (Version 1)
Quarter: 2012Q4

REPORT INFORMATION
  Report Type: Spontaneous
  Country: CA (occurrence: None)
  Receive Date: 20121127
  Receipt Date: 20121127
  Transmission Date: 20130627
  Serious: Yes (Disabling)
  Sender: FDA-Public Use
  Company Number: 2012-6172

PATIENT
  Age: 53 Year
  Sex: Female

DRUGS (1)
  1. LANREOTIDE AUTOGEL (LANREOTIDE) (LANREOTIDE ACETATE) [Suspect]
     Indication: NEUROENDOCRINE TUMOR
     Dosage: (60 mg, 1 in 28 D)
     Route: 058
     Dates: start: 20121203

REACTIONS (2)
  - Liver disorder [None]
  - Malignant neoplasm progression [None]
